FAERS Safety Report 18778249 (Version 1)
Quarter: 2021Q1

REPORT INFORMATION
  Report Type: Spontaneous
  Country: EC (occurrence: EC)
  Receive Date: 20210123
  Receipt Date: 20210123
  Transmission Date: 20210419
  Serious: Yes (Other)
  Sender: FDA-Public Use
  Company Number: NVSC2021EC009814

PATIENT
  Age: 11 Year
  Sex: Female

DRUGS (1)
  1. LECTRUM [Suspect]
     Active Substance: LEUPROLIDE ACETATE
     Indication: PRODUCT USED FOR UNKNOWN INDICATION
     Dosage: 1 DF (1 OF 7.5 MG), QMO
     Route: 030
     Dates: start: 20201113

REACTIONS (3)
  - Injection site pain [Recovering/Resolving]
  - Pain [Recovering/Resolving]
  - Gait disturbance [Unknown]
